FAERS Safety Report 6855778-4 (Version None)
Quarter: 2010Q3

REPORT INFORMATION
  Report Type: 
  Country: None (occurrence: None)
  Receive Date: 20100715
  Receipt Date: 20100715
  Transmission Date: 20110219
  Serious: No
  Sender: FDA-Public Use
  Company Number: None

PATIENT
  Sex: Female
  Weight: 70.3075 kg

DRUGS (1)
  1. ZICAM INTENSE SINUS RELIEF [Suspect]
     Indication: SINUS DISORDER
     Dosage: 2-3 PUMPS
     Dates: start: 20100407, end: 20100701

REACTIONS (2)
  - HYPOTENSION [None]
  - MUSCULAR WEAKNESS [None]
